FAERS Safety Report 9423725 (Version 1)
Quarter: 2013Q3

REPORT INFORMATION
  Report Type: Report from Study
  Country: DE (occurrence: DE)
  Receive Date: 20130728
  Receipt Date: 20130728
  Transmission Date: 20140515
  Serious: Yes (Other)
  Sender: FDA-Public Use
  Company Number: PHHY2013DE078498

PATIENT
  Sex: Female

DRUGS (5)
  1. FTY 720 [Suspect]
     Indication: MULTIPLE SCLEROSIS
     Dosage: 0.5 MG, QD
     Route: 048
     Dates: start: 20120702
  2. THYRONAJOD [Concomitant]
     Indication: HYPOTHYROIDISM
     Dosage: 50 MG, QD
     Dates: start: 20110601
  3. GABAPENTIN [Concomitant]
     Indication: MYALGIA
     Dosage: 900 MG, TID
     Route: 048
     Dates: start: 20050913
  4. BACLOFEN [Concomitant]
     Indication: MUSCLE SPASMS
     Dosage: 25 MG, TID
     Route: 048
     Dates: start: 20070611
  5. CIPRALEX                                /DEN/ [Concomitant]
     Indication: DEPRESSION
     Dosage: 10 MG, QD
     Route: 048
     Dates: start: 20060129

REACTIONS (2)
  - Renal failure acute [Recovered/Resolved]
  - Gastroenteritis [Recovered/Resolved]
